FAERS Safety Report 7508513-0 (Version None)
Quarter: 2011Q2

REPORT INFORMATION
  Report Type: 
  Country: None (occurrence: None)
  Receive Date: 20110527
  Receipt Date: 20110525
  Transmission Date: 20111010
  Serious: Yes (Death, Other)
  Sender: FDA-Public Use
  Company Number: FR-PFIZER INC-2011112893

PATIENT
  Age: 16 Year
  Sex: Male
  Weight: 70 kg

DRUGS (17)
  1. MICAFUNGIN [Concomitant]
     Dosage: UNK
     Dates: start: 20110205
  2. AMOXICILLIN AND CLAVULANATE POTASSIUM [Suspect]
     Indication: PNEUMONIA ASPIRATION
     Dosage: UNK
     Dates: start: 20110129, end: 20110129
  3. PIPERACILLIN AND TAZOBACTAM [Suspect]
     Indication: PNEUMONIA ASPIRATION
     Dosage: UNK
     Dates: start: 20110203, end: 20110204
  4. FENTANYL [Suspect]
     Dosage: UNK
     Dates: start: 20110129, end: 20110209
  5. CEFOTAXIME [Suspect]
     Dosage: UNK
     Dates: start: 20110129, end: 20110129
  6. PLASMION [Suspect]
     Dosage: UNK
     Dates: start: 20110129, end: 20110130
  7. AMIKACIN [Suspect]
     Dosage: UNK
     Dates: start: 20110130, end: 20110206
  8. FUROSEMIDE [Suspect]
     Dosage: UNK
     Dates: start: 20110201, end: 20110209
  9. METRONIDAZOLE [Suspect]
     Indication: PNEUMONIA ASPIRATION
     Dosage: UNK
     Dates: start: 20110129, end: 20110208
  10. VITAMIN K1 [Suspect]
     Dosage: UNK
     Route: 042
     Dates: start: 20110130, end: 20110130
  11. COSYNTROPIN [Suspect]
     Dosage: UNK
     Dates: start: 20110131, end: 20110131
  12. COLCHICINE [Suspect]
     Dosage: 20 MG, SINGLE
     Route: 048
     Dates: start: 20110127, end: 20110127
  13. CEFTRIAXONE SODIUM [Suspect]
     Indication: PNEUMONIA ASPIRATION
     Dosage: UNK
     Dates: start: 20110129, end: 20110203
  14. NEXIUM [Suspect]
     Dosage: UNK
     Dates: start: 20110130, end: 20110203
  15. ZYVOX [Suspect]
     Indication: STAPHYLOCOCCAL INFECTION
     Dosage: UNK
     Route: 042
     Dates: start: 20110204, end: 20110209
  16. MIDAZOLAM HCL [Suspect]
     Dosage: UNK
     Dates: start: 20110129, end: 20110209
  17. DIPRIVAN [Suspect]
     Dosage: UNK
     Dates: start: 20110131, end: 20110201

REACTIONS (3)
  - HEPATIC STEATOSIS [None]
  - PANCYTOPENIA [None]
  - DERMATITIS EXFOLIATIVE [None]
